FAERS Safety Report 11486120 (Version 2)
Quarter: 2015Q3

REPORT INFORMATION
  Report Type: Spontaneous
  Country: AR (occurrence: AR)
  Receive Date: 20150910
  Receipt Date: 20150918
  Transmission Date: 20151125
  Serious: Yes (Other)
  Sender: FDA-Public Use
  Company Number: AR-AMGEN-ARGSP2015020222

PATIENT
  Age: 61 Year
  Sex: Female

DRUGS (11)
  1. ENBREL [Suspect]
     Active Substance: ETANERCEPT
     Dosage: 50 MG, WEEKLY
     Route: 065
     Dates: start: 20140225, end: 201502
  2. ENBREL [Suspect]
     Active Substance: ETANERCEPT
     Dosage: 50 MG, WEEKLY
     Route: 065
     Dates: start: 20150904
  3. FLEXIDOL                           /01007201/ [Concomitant]
     Dosage: UNK
     Dates: start: 2011
  4. ACIFOL                             /00024201/ [Concomitant]
     Dosage: UNK
     Dates: start: 2005
  5. VENORUTON                          /00027704/ [Concomitant]
     Dosage: UNK
     Dates: start: 201506
  6. CALCIO                             /00183801/ [Concomitant]
     Dosage: UNK
     Dates: start: 2005, end: 2014
  7. ENBREL [Suspect]
     Active Substance: ETANERCEPT
     Indication: RHEUMATOID ARTHRITIS
     Dosage: UNK
     Route: 065
     Dates: start: 20140225, end: 201508
  8. LEVOTIROXINA [Concomitant]
     Active Substance: LEVOTHYROXINE SODIUM
     Dosage: UNK
     Dates: start: 2005
  9. ARTRAIT                            /00113801/ [Concomitant]
     Active Substance: METHOTREXATE SODIUM
     Dosage: UNK
     Dates: start: 2005
  10. HIERRO                             /00023501/ [Concomitant]
     Dosage: UNK
     Dates: start: 2005
  11. NEXIUM [Concomitant]
     Active Substance: ESOMEPRAZOLE MAGNESIUM
     Dosage: UNK
     Dates: start: 2015

REACTIONS (4)
  - Pain in extremity [Recovered/Resolved]
  - Peripheral swelling [Recovered/Resolved]
  - Abasia [Recovered/Resolved]
  - Pain [Recovered/Resolved]

NARRATIVE: CASE EVENT DATE: 201502
